FAERS Safety Report 7784399-4 (Version None)
Quarter: 2011Q3

REPORT INFORMATION
  Report Type: 
  Country: None (occurrence: None)
  Receive Date: 20110928
  Receipt Date: 20110927
  Transmission Date: 20111222
  Serious: Yes (Hospitalization, Other)
  Sender: FDA-Public Use
  Company Number: PHEH2011US05181

PATIENT
  Sex: Male
  Weight: 60 kg

DRUGS (1)
  1. EXJADE [Suspect]
     Indication: IRON METABOLISM DISORDER
     Dosage: 1250 MG DAILY
     Route: 048
     Dates: start: 20100501

REACTIONS (4)
  - CEREBROVASCULAR ACCIDENT [None]
  - WOUND [None]
  - GOUT [None]
  - BURNING SENSATION [None]
